FAERS Safety Report 9830180 (Version 7)
Quarter: 2015Q2

REPORT INFORMATION
  Report Type: Report from Study
  Country: US (occurrence: US)
  Receive Date: 20140120
  Receipt Date: 20150406
  Transmission Date: 20150821
  Serious: Yes (Hospitalization, Disabling)
  Sender: FDA-Public Use
  Company Number: US-SA-2014SA004001

PATIENT
  Age: 48 Year
  Sex: Male

DRUGS (1)
  1. AUBAGIO [Suspect]
     Active Substance: TERIFLUNOMIDE
     Indication: RELAPSING-REMITTING MULTIPLE SCLEROSIS
     Route: 048
     Dates: start: 20130917

REACTIONS (12)
  - Pain in extremity [Unknown]
  - Cystitis [Recovering/Resolving]
  - Central nervous system lesion [Not Recovered/Not Resolved]
  - Unevaluable event [Unknown]
  - Hearing impaired [Unknown]
  - Multiple sclerosis relapse [Not Recovered/Not Resolved]
  - Visual impairment [Unknown]
  - Eye disorder [Not Recovered/Not Resolved]
  - Malaise [Unknown]
  - Facial asymmetry [Not Recovered/Not Resolved]
  - Urinary tract infection [Unknown]
  - Arthralgia [Unknown]
